FAERS Safety Report 8860821 (Version 2)
Quarter: 2012Q4

REPORT INFORMATION
  Report Type: 
  Country: US (occurrence: US)
  Receive Date: 20121026
  Receipt Date: 20121106
  Transmission Date: 20130627
  Serious: Yes (Hospitalization)
  Sender: FDA-Public Use
  Company Number: US-BIOGENIDEC-2012BI046017

PATIENT
  Age: 28 Year
  Sex: Female
  Weight: 81 kg

DRUGS (10)
  1. TYSABRI [Suspect]
     Indication: MULTIPLE SCLEROSIS
     Route: 042
     Dates: start: 20100813, end: 20120413
  2. TYSABRI [Suspect]
     Indication: MULTIPLE SCLEROSIS
  3. CALCIUM [Concomitant]
     Route: 048
  4. VITAMIN D3 [Concomitant]
     Route: 048
  5. CITALOPRAM [Concomitant]
     Route: 048
  6. DIPHENHYDRAMINE [Concomitant]
     Route: 048
  7. GABAPENTIN [Concomitant]
     Route: 048
  8. REBIF [Concomitant]
     Route: 058
  9. LORATADINE [Concomitant]
     Route: 048
  10. PREDNISONE [Concomitant]

REACTIONS (1)
  - Multiple sclerosis relapse [Not Recovered/Not Resolved]
